FAERS Safety Report 9885401 (Version 4)
Quarter: 2014Q2

REPORT INFORMATION
  Report Type: Spontaneous
  Country: US (occurrence: US)
  Receive Date: 20140210
  Receipt Date: 20140515
  Transmission Date: 20141212
  Serious: Yes (Other)
  Sender: FDA-Public Use
  Company Number: US-PFIZER INC-2014035177

PATIENT
  Age: 53 Year
  Sex: Female
  Weight: 59 kg

DRUGS (1)
  1. EFFEXOR XR [Suspect]
     Indication: DEPRESSION
     Dosage: 150 MG, 1X/DAY
     Route: 048
     Dates: start: 201401, end: 201402

REACTIONS (6)
  - Paralysis [Unknown]
  - Headache [Unknown]
  - Restlessness [Unknown]
  - Insomnia [Unknown]
  - Feeling jittery [Unknown]
  - Hypertension [Unknown]
